FAERS Safety Report 7389558-0 (Version None)
Quarter: 2011Q2

REPORT INFORMATION
  Report Type: 
  Country: None (occurrence: None)
  Receive Date: 20110401
  Receipt Date: 20110323
  Transmission Date: 20111010
  Serious: Yes (Hospitalization)
  Sender: FDA-Public Use
  Company Number: US-ASTRAZENECA-2011SE08965

PATIENT
  Age: 65 Year
  Sex: Female

DRUGS (1)
  1. NEXIUM [Suspect]
     Route: 048
     Dates: start: 20090101

REACTIONS (10)
  - DRUG DOSE OMISSION [None]
  - DYSSTASIA [None]
  - APHAGIA [None]
  - KNEE ARTHROPLASTY [None]
  - HERNIA PAIN [None]
  - MALAISE [None]
  - INTERVERTEBRAL DISC PROTRUSION [None]
  - KNEE OPERATION [None]
  - BEDRIDDEN [None]
  - GASTRIC DISORDER [None]
